FAERS Safety Report 6465199-4 (Version None)
Quarter: 2009Q4

REPORT INFORMATION
  Report Type: 
  Country: None (occurrence: None)
  Receive Date: 20091201
  Receipt Date: 20091119
  Transmission Date: 20100525
  Serious: Yes (Other)
  Sender: FDA-Public Use
  Company Number: PHHY2009GB51449

PATIENT
  Age: 73 Year
  Sex: Female

DRUGS (1)
  1. TEGRETOL [Suspect]
     Indication: TRIGEMINAL NEURALGIA
     Dosage: UNK
     Dates: end: 20091113

REACTIONS (9)
  - APHASIA [None]
  - BREAST SWELLING [None]
  - COELIAC DISEASE [None]
  - DIZZINESS [None]
  - LYMPHADENOPATHY [None]
  - NECK MASS [None]
  - PAIN [None]
  - SKIN DISCOLOURATION [None]
  - VISION BLURRED [None]
